FAERS Safety Report 5897666-6 (Version None)
Quarter: 2008Q3

REPORT INFORMATION
  Report Type: 
  Country: None (occurrence: None)
  Receive Date: 20080923
  Receipt Date: 20080915
  Transmission Date: 20090109
  Serious: Yes (Hospitalization)
  Sender: FDA-Public Use
  Company Number: 2008SP018895

PATIENT
  Age: 66 Year
  Sex: Female
  Weight: 70 kg

DRUGS (4)
  1. TEMODAL [Suspect]
     Indication: ASTROCYTOMA
     Dates: start: 20080731
  2. TEMODAL [Suspect]
     Indication: GLIOBLASTOMA
     Dates: start: 20080731
  3. DEXAMETHASONE [Concomitant]
  4. LEVETIRACETAM [Concomitant]

REACTIONS (3)
  - ADRENOCORTICAL INSUFFICIENCY ACUTE [None]
  - POLLAKIURIA [None]
  - URINARY TRACT INFECTION [None]
